FAERS Safety Report 5489006-1 (Version None)
Quarter: 2007Q4

REPORT INFORMATION
  Report Type: 
  Country: None (occurrence: None)
  Receive Date: 20071005
  Receipt Date: 20070921
  Transmission Date: 20080405
  Serious: Yes (Death)
  Sender: FDA-Public Use
  Company Number: THYM-11546

PATIENT
  Age: 49 Year
  Sex: Male
  Weight: 80 kg

DRUGS (8)
  1. THYMOGLOBULIN [Suspect]
     Indication: GRAFT VERSUS HOST DISEASE
     Dosage: 80 MG QD IV
     Route: 042
     Dates: start: 20070531, end: 20070601
  2. THYMOGLOBULIN [Suspect]
     Indication: GRAFT VERSUS HOST DISEASE
     Dosage: 75 MG QD IV
     Route: 042
     Dates: start: 20070601, end: 20070612
  3. CANCIDAS [Concomitant]
  4. ROCEPHIN. MFR: HOFFMAN-LA ROCHE, INC. [Concomitant]
  5. DOXYCYCLINE [Concomitant]
  6. COTRIM. MFR: LEMMON PHARMACAL COMPANY [Concomitant]
  7. ACYCLOVIR [Concomitant]
  8. PENTAGLOBIN. MFR: BIOTEST-SERUM-INSTITUT GMBH [Concomitant]

REACTIONS (9)
  - ACUTE GRAFT VERSUS HOST DISEASE IN INTESTINE [None]
  - ACUTE GRAFT VERSUS HOST DISEASE IN LIVER [None]
  - ACUTE GRAFT VERSUS HOST DISEASE IN SKIN [None]
  - BONE MARROW FAILURE [None]
  - CARDIAC FAILURE [None]
  - CONDITION AGGRAVATED [None]
  - GASTROINTESTINAL HAEMORRHAGE [None]
  - GRAFT VERSUS HOST DISEASE [None]
  - PNEUMONIA [None]
